FAERS Safety Report 6785846-7 (Version None)
Quarter: 2010Q2

REPORT INFORMATION
  Report Type: 
  Country: None (occurrence: None)
  Receive Date: 20100623
  Receipt Date: 20100611
  Transmission Date: 20101027
  Serious: Yes (Hospitalization)
  Sender: FDA-Public Use
  Company Number: DE-PFIZER INC-2010073211

PATIENT
  Age: 46 Year
  Sex: Male

DRUGS (10)
  1. ZOLOFT [Suspect]
     Dosage: 50 MG DAILY
     Route: 048
     Dates: start: 20091002, end: 20091009
  2. DIPIPERON [Concomitant]
     Dosage: 40 MG DAILY
     Route: 048
     Dates: start: 20090916
  3. REMERGIL [Concomitant]
     Dosage: 30 MG DAILY
     Route: 048
     Dates: start: 20090911, end: 20091004
  4. ALLOPURINOL [Concomitant]
     Dosage: 100 MG DAILY
     Route: 048
  5. CARVEDILOL [Concomitant]
     Dosage: 25 MG DAILY
     Route: 048
  6. MOXONIDINE [Concomitant]
     Dosage: 0.3 MG DAILY
     Route: 048
  7. XIPAMIDE [Concomitant]
     Dosage: 20 MG DAILY
     Route: 048
  8. DIOVAN [Concomitant]
     Dosage: 80 MG DAILY
     Route: 048
  9. ACCUZIDE [Concomitant]
     Dosage: [QUINAPRIL HYDROCHLORIDE 20 MG]/[HYDROCHLOROTHIAZIDE 12.5 MG]/ PER DAY
     Route: 048
  10. FENOFIBRATE [Concomitant]
     Dosage: 100 MG DAILY
     Route: 048

REACTIONS (1)
  - DYSPHORIA [None]
